FAERS Safety Report 18043902 (Version 2)
Quarter: 2020Q3

REPORT INFORMATION
  Report Type: Spontaneous
  Country: US (occurrence: US)
  Receive Date: 20200720
  Receipt Date: 20200814
  Transmission Date: 20201103
  Serious: No
  Sender: FDA-Public Use
  Company Number: US-GLAXOSMITHKLINE-US2020AMR135498

PATIENT
  Sex: Male

DRUGS (1)
  1. LAMICTAL [Suspect]
     Active Substance: LAMOTRIGINE
     Indication: EPILEPSY
     Dosage: 1.5 DF, BID (TAKE ONE AND ONE?HALF TABLETS)
     Route: 048
     Dates: start: 20200513, end: 20200526

REACTIONS (1)
  - Dizziness [Recovered/Resolved]
